FAERS Safety Report 4372816-1 (Version None)
Quarter: 2004Q2

REPORT INFORMATION
  Report Type: 
  Country: None (occurrence: None)
  Receive Date: 20040526
  Receipt Date: 20040510
  Transmission Date: 20050107
  Serious: Yes (Hospitalization, Other)
  Sender: FDA-Public Use
  Company Number: 04-166-0768

PATIENT
  Age: 78 Year
  Sex: Male
  Weight: 79 kg

DRUGS (1)
  1. DAUNORUBICIN, UNKNOWN STRENGTH, BEN VENUE LABS [Suspect]
     Indication: ACUTE MYELOID LEUKAEMIA
     Dosage: 45 MG/M2 IV DAYS 1, 3
     Route: 042
     Dates: start: 20030630

REACTIONS (3)
  - ARRHYTHMIA SUPRAVENTRICULAR [None]
  - CONFUSIONAL STATE [None]
  - MYALGIA [None]
